FAERS Safety Report 24962085 (Version 2)
Quarter: 2025Q1

REPORT INFORMATION
  Report Type: Spontaneous
  Country: US (occurrence: US)
  Receive Date: 20250212
  Receipt Date: 20250303
  Transmission Date: 20250409
  Serious: No
  Sender: SK LIFE SCIENCE
  Company Number: US-SK LIFE SCIENCE, INC.-SKPVG-2025-000254

PATIENT

DRUGS (1)
  1. XCOPRI [Suspect]
     Active Substance: CENOBAMATE
     Indication: Epilepsy
     Route: 065

REACTIONS (5)
  - Fear of death [Unknown]
  - Drug ineffective [Unknown]
  - Brain fog [Unknown]
  - Adverse drug reaction [Unknown]
  - Fatigue [Unknown]
